FAERS Safety Report 9183777 (Version 1)
Quarter: 2012Q4

REPORT INFORMATION
  Report Type: 
  Country: CO (occurrence: CO)
  Receive Date: 20121030
  Receipt Date: 20121030
  Transmission Date: 20130627
  Serious: Yes (Life-Threatening, Hospitalization)
  Sender: FDA-Public Use
  Company Number: CO-SANOFI-AVENTIS-2012SA078474

PATIENT
  Age: 82 Year
  Sex: Male

DRUGS (2)
  1. LANTUS [Suspect]
     Indication: DIABETES MELLITUS
     Route: 058
     Dates: start: 2011
  2. APIDRA [Suspect]
     Indication: DIABETES MELLITUS
     Dosage: 6 IU, 10 IU, 6 IU
     Route: 058
     Dates: start: 2011

REACTIONS (2)
  - Adenocarcinoma of colon [Not Recovered/Not Resolved]
  - Rectal haemorrhage [Not Recovered/Not Resolved]
